FAERS Safety Report 21721225 (Version 1)
Quarter: 2022Q4

REPORT INFORMATION
  Report Type: Spontaneous
  Country: US (occurrence: US)
  Receive Date: 20221213
  Receipt Date: 20221213
  Transmission Date: 20230113
  Serious: No
  Sender: FDA-Public Use
  Company Number: US-SA-SAC20221209000738

PATIENT
  Sex: Male
  Weight: 77.098 kg

DRUGS (4)
  1. DUPIXENT [Suspect]
     Active Substance: DUPILUMAB
     Indication: Dermatitis atopic
     Dosage: 2 ML, QOW
     Route: 058
     Dates: start: 2021
  2. ADBRY [Concomitant]
     Active Substance: TRALOKINUMAB-LDRM
  3. VITAMINS [Concomitant]
     Active Substance: VITAMINS
     Dosage: UNK, QD
  4. PREVACID [Concomitant]
     Active Substance: LANSOPRAZOLE

REACTIONS (2)
  - Rash papular [Unknown]
  - Drug ineffective [Unknown]
